FAERS Safety Report 8775210 (Version 2)
Quarter: 2012Q4

REPORT INFORMATION
  Report Type: Report from Study
  Country: US (occurrence: US)
  Receive Date: 20120907
  Receipt Date: 20120921
  Transmission Date: 20130627
  Serious: Yes (Hospitalization)
  Sender: FDA-Public Use
  Company Number: US-ASTELLAS-2012US007515

PATIENT
  Age: 66 Year
  Sex: Male

DRUGS (1)
  1. ERLOTINIB TABLET [Suspect]
     Indication: PANCREATIC CARCINOMA
     Dosage: 100 mg, UID/QD
     Route: 048
     Dates: start: 20120718

REACTIONS (5)
  - Nonspecific reaction [Unknown]
  - Abdominal pain [Unknown]
  - Constipation [Unknown]
  - Decreased appetite [Unknown]
  - Vomiting [Unknown]
